FAERS Safety Report 5312719-9 (Version None)
Quarter: 2007Q2

REPORT INFORMATION
  Report Type: 
  Country: None (occurrence: None)
  Receive Date: 20070430
  Receipt Date: 20070423
  Transmission Date: 20071010
  Serious: Yes (Hospitalization)
  Sender: FDA-Public Use
  Company Number: US-GENENTECH-240432

PATIENT
  Sex: Male

DRUGS (1)
  1. PULMOZYME [Suspect]
     Indication: PNEUMONIA
     Dosage: 2.5 MG, SINGLE
     Route: 055
     Dates: start: 20070421

REACTIONS (1)
  - LOSS OF CONSCIOUSNESS [None]
